FAERS Safety Report 23570356 (Version 1)
Quarter: 2024Q1

REPORT INFORMATION
  Report Type: Spontaneous
  Country: GB (occurrence: GB)
  Receive Date: 20240227
  Receipt Date: 20240227
  Transmission Date: 20240409
  Serious: Yes (Other)
  Sender: FDA-Public Use
  Company Number: None

PATIENT
  Age: 34 Year
  Sex: Male
  Weight: 80 kg

DRUGS (1)
  1. FINASTERIDE [Suspect]
     Active Substance: FINASTERIDE
     Indication: Adverse drug reaction
     Dosage: 1ML (CONTAINING 0.5MG OF FINASTERIDE) APPLIED TWICE DAILY IN THE MORNING AND EVENING
     Dates: start: 20220408, end: 20231229

REACTIONS (9)
  - Erectile dysfunction [Not Recovered/Not Resolved]
  - Loss of libido [Not Recovered/Not Resolved]
  - Alopecia [Not Recovered/Not Resolved]
  - Tinnitus [Not Recovered/Not Resolved]
  - Depressed mood [Not Recovered/Not Resolved]
  - Penile pain [Not Recovered/Not Resolved]
  - Genital hypoaesthesia [Not Recovered/Not Resolved]
  - Anorgasmia [Not Recovered/Not Resolved]
  - Scrotal pain [Not Recovered/Not Resolved]

NARRATIVE: CASE EVENT DATE: 20231230
